FAERS Safety Report 19377287 (Version 1)
Quarter: 2021Q2

REPORT INFORMATION
  Report Type: Spontaneous
  Country: CZ (occurrence: CZ)
  Receive Date: 20210604
  Receipt Date: 20210604
  Transmission Date: 20210717
  Serious: Yes (Other)
  Sender: FDA-Public Use
  Company Number: CZ-MYLANLABS-2021M1032214

PATIENT
  Age: 35 Year
  Sex: Female

DRUGS (8)
  1. DOCETAXEL. [Suspect]
     Active Substance: DOCETAXEL
     Indication: OVARIAN CANCER
     Dosage: UNK, 3 CYCLES
     Route: 065
     Dates: start: 202006
  2. BEVACIZUMAB. [Suspect]
     Active Substance: BEVACIZUMAB
     Dosage: UNK, 4 CYCLES MONOTHERAPY
  3. BEVACIZUMAB. [Suspect]
     Active Substance: BEVACIZUMAB
     Dosage: UNK, 4 CYCLES
     Dates: start: 201906
  4. GEMCITABINE. [Suspect]
     Active Substance: GEMCITABINE
     Dosage: 4 CYCLES
     Dates: start: 201906
  5. GEMCITABINE. [Suspect]
     Active Substance: GEMCITABINE
     Indication: OVARIAN CANCER
     Dosage: UNK, 10 CYCLES UNTIL MAY 2020
     Route: 065
  6. CARBOPLATIN. [Suspect]
     Active Substance: CARBOPLATIN
     Dosage: UNK, 4 CYCLES
     Route: 065
     Dates: start: 201906
  7. BEVACIZUMAB. [Suspect]
     Active Substance: BEVACIZUMAB
     Indication: OVARIAN CANCER
     Dosage: UNK, 10 CYCLES UNTIL MAY 2020
     Route: 065
  8. CARBOPLATIN. [Suspect]
     Active Substance: CARBOPLATIN
     Indication: OVARIAN CANCER
     Dosage: UNK, 10 CYCLES UNTIL MAY 2020

REACTIONS (3)
  - Toxicity to various agents [Unknown]
  - Therapeutic product effect incomplete [Unknown]
  - Disease progression [Unknown]

NARRATIVE: CASE EVENT DATE: 202006
